FAERS Safety Report 5442122-2 (Version None)
Quarter: 2007Q3

REPORT INFORMATION
  Report Type: 
  Country: None (occurrence: None)
  Receive Date: 20070829
  Receipt Date: 20070814
  Transmission Date: 20080115
  Serious: Yes (Death, Hospitalization, Other)
  Sender: FDA-Public Use
  Company Number: GXKR2007US06958

PATIENT
  Age: 36 Year
  Sex: Female
  Weight: 61.2 kg

DRUGS (9)
  1. VENLAFAXIINE HCL [Suspect]
     Indication: CONVULSION
  2. METOCLOPRAMIDE [Suspect]
  3. NEURONTIN [Suspect]
     Indication: CONVULSION
  4. DEPAKOTE [Suspect]
     Indication: CONVULSION
  5. DILANTIN KAPSEAL [Suspect]
     Indication: CONVULSION
  6. KLONOPIN [Suspect]
     Indication: CONVULSION
  7. TEGRETOL [Suspect]
     Indication: CONVULSION
  8. KEPPRA [Suspect]
     Indication: CONVULSION
  9. MYSOLINE [Suspect]
     Indication: CONVULSION

REACTIONS (20)
  - ANAEMIA [None]
  - BLOOD IRON DECREASED [None]
  - CARDIOTOXICITY [None]
  - CATABOLIC STATE [None]
  - CEREBRAL HAEMORRHAGE [None]
  - CLOSTRIDIUM DIFFICILE COLITIS [None]
  - DEHYDRATION [None]
  - ENCEPHALOPATHY [None]
  - HEPATIC FAILURE [None]
  - HEPATIC NECROSIS [None]
  - NEUROLEPTIC MALIGNANT SYNDROME [None]
  - ORAL INTAKE REDUCED [None]
  - PNEUMONIA [None]
  - PULMONARY OEDEMA [None]
  - RENAL FAILURE ACUTE [None]
  - RENAL TUBULAR NECROSIS [None]
  - RHABDOMYOLYSIS [None]
  - SYMPATHOMIMETIC EFFECT [None]
  - UNRESPONSIVE TO STIMULI [None]
  - VITAMIN B12 INCREASED [None]
